FAERS Safety Report 5009392-6 (Version None)
Quarter: 2006Q2

REPORT INFORMATION
  Report Type: 
  Country: None (occurrence: None)
  Receive Date: 20060524
  Receipt Date: 20060518
  Transmission Date: 20061013
  Serious: Yes (Hospitalization)
  Sender: FDA-Public Use
  Company Number: FR-JNJFOC-20060200607

PATIENT
  Sex: Male

DRUGS (1)
  1. RISPERDAL [Suspect]
     Route: 048

REACTIONS (1)
  - HENOCH-SCHONLEIN PURPURA [None]
